FAERS Safety Report 8807599 (Version 1)
Quarter: 2012Q4

REPORT INFORMATION
  Report Type: 
  Country: US (occurrence: US)
  Receive Date: 20120925
  Receipt Date: 20120925
  Transmission Date: 20130627
  Serious: No
  Sender: FDA-Public Use
  Company Number: US-BAYER-2012-098762

PATIENT
  Age: 67 Year
  Sex: Female

DRUGS (5)
  1. AVELOX [Suspect]
     Indication: PNEUMONIA
     Dosage: UNK
     Dates: start: 20120917
  2. VITAMIN D [Concomitant]
  3. VITAMIN B [Concomitant]
  4. MAGNESIUM [Concomitant]
  5. CHROMIUM [Concomitant]
     Dosage: 400 mg, UNK

REACTIONS (2)
  - Abdominal pain [Recovering/Resolving]
  - Asthenia [Recovering/Resolving]
